FAERS Safety Report 5515765-5 (Version None)
Quarter: 2007Q4

REPORT INFORMATION
  Report Type: 
  Country: None (occurrence: None)
  Receive Date: 20071109
  Receipt Date: 20071101
  Transmission Date: 20080405
  Serious: Yes (Hospitalization, Other)
  Sender: FDA-Public Use
  Company Number: GXKR2007DE09286

PATIENT
  Sex: Male

DRUGS (1)
  1. ENAHEXAL COMP (NGX)(ENALAPRIL, HYDROCHLOROTHIAZIDE) TABLET, 10/25MG [Suspect]
     Dosage: 8 X 10/25 MG AT ONCE, ORAL
     Route: 048

REACTIONS (2)
  - INTENTIONAL OVERDOSE [None]
  - SUICIDE ATTEMPT [None]
